FAERS Safety Report 9690862 (Version 2)
Quarter: 2013Q4

REPORT INFORMATION
  Report Type: Report from Study
  Country: PR (occurrence: PR)
  Receive Date: 20131115
  Receipt Date: 20131115
  Transmission Date: 20140711
  Serious: Yes (Hospitalization)
  Sender: FDA-Public Use
  Company Number: PR-ABBVIE-13P-131-1128683-00

PATIENT
  Age: 58 Year
  Sex: Male
  Weight: 68.1 kg

DRUGS (13)
  1. HUMIRA [Suspect]
     Indication: PSORIASIS
     Route: 058
     Dates: start: 2010, end: 20130427
  2. CIPRO [Suspect]
  3. TRAZODONA [Concomitant]
     Indication: INSOMNIA
     Route: 048
  4. ATIVAN [Concomitant]
     Indication: MENTAL DISORDER
     Route: 048
  5. TEMAZEPAM [Concomitant]
     Indication: MENTAL DISORDER
     Route: 048
  6. PROZAC [Concomitant]
     Indication: MENTAL DISORDER
  7. PROCARBAZINE [Concomitant]
     Indication: PROSTATIC DISORDER
  8. SEROQUEL [Concomitant]
     Indication: MENTAL DISORDER
  9. DEPAKOTE [Concomitant]
     Indication: MENTAL DISORDER
  10. KLONOPIN [Concomitant]
     Indication: MENTAL DISORDER
     Route: 048
  11. UNKNOWN MEDICATION [Concomitant]
     Indication: MENTAL DISORDER
     Route: 048
  12. UNKNOWN MEDICATION [Concomitant]
     Indication: MENTAL DISORDER
  13. MELATONINA [Concomitant]
     Indication: MENTAL DISORDER
     Route: 048

REACTIONS (2)
  - Prostatitis [Recovered/Resolved]
  - Urinary tract infection [Not Recovered/Not Resolved]
